FAERS Safety Report 21357670 (Version 1)
Quarter: 2022Q3

REPORT INFORMATION
  Report Type: Spontaneous
  Country: US (occurrence: US)
  Receive Date: 20220921
  Receipt Date: 20220921
  Transmission Date: 20221027
  Serious: No
  Sender: FDA-Public Use
  Company Number: US-UROGEN PHARMA LTD.-2022-UGN-000083

PATIENT

DRUGS (6)
  1. JELMYTO [Suspect]
     Active Substance: MITOMYCIN
     Indication: Transitional cell cancer of the renal pelvis and ureter
     Dosage: 1 MILLIGRAM (MG) (INSTILLATION)
     Dates: start: 20220526, end: 20220526
  2. JELMYTO [Suspect]
     Active Substance: MITOMYCIN
     Dosage: 1 MILLIGRAM (MG) (INSTILLATION)
     Dates: start: 20220603, end: 20220603
  3. JELMYTO [Suspect]
     Active Substance: MITOMYCIN
     Dosage: 1 MILLIGRAM (MG) (INSTILLATION)
     Dates: start: 20220610, end: 20220610
  4. JELMYTO [Suspect]
     Active Substance: MITOMYCIN
     Dosage: 1 MILLIGRAM (MG) (INSTILLATION)
     Dates: start: 20220708, end: 20220708
  5. JELMYTO [Suspect]
     Active Substance: MITOMYCIN
     Dosage: 1 MILLIGRAM (MG) (INSTILLATION)
     Dates: start: 20220715, end: 20220715
  6. JELMYTO [Suspect]
     Active Substance: MITOMYCIN
     Dosage: 1 MILLIGRAM (MG) (INSTILLATION)
     Dates: start: 20220722, end: 20220722

REACTIONS (1)
  - Fatigue [Unknown]

NARRATIVE: CASE EVENT DATE: 20220701
